FAERS Safety Report 7641776-X (Version None)
Quarter: 2011Q3

REPORT INFORMATION
  Report Type: 
  Country: None (occurrence: None)
  Receive Date: 20110728
  Receipt Date: 20110719
  Transmission Date: 20111222
  Serious: Yes (Other)
  Sender: FDA-Public Use
  Company Number: US-ROCHE-757394

PATIENT
  Sex: Female
  Weight: 74.8 kg

DRUGS (4)
  1. YASMIN [Concomitant]
  2. ACCUTANE [Suspect]
     Indication: ACNE
     Route: 065
     Dates: start: 19900101, end: 19901201
  3. YAZ [Concomitant]
  4. ACCUTANE [Suspect]
     Route: 065
     Dates: start: 19911101

REACTIONS (6)
  - INFLAMMATORY BOWEL DISEASE [None]
  - RECTAL POLYP [None]
  - GASTROINTESTINAL INJURY [None]
  - EPISTAXIS [None]
  - COLITIS ULCERATIVE [None]
  - BACK PAIN [None]
